FAERS Safety Report 6829997-7 (Version None)
Quarter: 2010Q3

REPORT INFORMATION
  Report Type: 
  Country: None (occurrence: None)
  Receive Date: 20100711
  Receipt Date: 20100420
  Transmission Date: 20110219
  Serious: No
  Sender: FDA-Public Use
  Company Number: US-ALLERGAN-1005134US

PATIENT
  Sex: Female

DRUGS (4)
  1. LATISSE [Suspect]
     Indication: GROWTH OF EYELASHES
  2. SYNTHROID [Concomitant]
     Dosage: UNK
  3. COMBINATIONS OF VITAMINS [Concomitant]
     Dosage: UNK
  4. FISH OIL [Concomitant]
     Dosage: UNK

REACTIONS (3)
  - DRUG INEFFECTIVE [None]
  - MADAROSIS [None]
  - TRICHORRHEXIS [None]
